FAERS Safety Report 9676951 (Version 3)
Quarter: 2014Q1

REPORT INFORMATION
  Report Type: Spontaneous
  Country: US (occurrence: US)
  Receive Date: 20131108
  Receipt Date: 20140123
  Transmission Date: 20141002
  Serious: Yes (Hospitalization, Other)
  Sender: FDA-Public Use
  Company Number: US-009507513-1311USA001875

PATIENT
  Sex: Male

DRUGS (3)
  1. REMERON [Suspect]
     Route: 048
  2. LATUDA [Suspect]
     Dosage: UNK
     Route: 048
     Dates: end: 201307
  3. ZOLOFT [Suspect]
     Dosage: UNK

REACTIONS (4)
  - Surgery [Unknown]
  - Back disorder [Unknown]
  - Serotonin syndrome [Unknown]
  - Pain [Unknown]
